FAERS Safety Report 5629708-7 (Version None)
Quarter: 2008Q1

REPORT INFORMATION
  Report Type: 
  Country: None (occurrence: None)
  Receive Date: 20080214
  Receipt Date: 20080130
  Transmission Date: 20080703
  Serious: Yes (Hospitalization)
  Sender: FDA-Public Use
  Company Number: GXKR2008US01276

PATIENT
  Age: 76 Year
  Sex: Female

DRUGS (5)
  1. ASPIRIN [Suspect]
     Indication: CORONARY ARTERY DISEASE
     Dosage: 81 MG
  2. SPIRONOLACTONE [Concomitant]
  3. FUROSEMIDE [Concomitant]
  4. OMPERAZOLE             (OMEPRAZOLE) [Concomitant]
  5. GABAPENTIN [Concomitant]

REACTIONS (17)
  - BLOOD PRESSURE SYSTOLIC INCREASED [None]
  - BLOOD SODIUM DECREASED [None]
  - CHEST INJURY [None]
  - CONTUSION [None]
  - DIZZINESS [None]
  - ELECTROCARDIOGRAM POOR R-WAVE PROGRESSION [None]
  - FALL [None]
  - HAEMOGLOBIN DECREASED [None]
  - HEPATIC ENZYME INCREASED [None]
  - INTERNATIONAL NORMALISED RATIO INCREASED [None]
  - MEDIASTINAL HAEMATOMA [None]
  - MUSCULOSKELETAL PAIN [None]
  - NAUSEA [None]
  - RESPIRATORY DISTRESS [None]
  - STRIDOR [None]
  - THROMBOCYTOPENIA [None]
  - VOMITING [None]
